FAERS Safety Report 8269922-8 (Version None)
Quarter: 2012Q2

REPORT INFORMATION
  Report Type: 
  Country: None (occurrence: None)
  Receive Date: 20120410
  Receipt Date: 20120403
  Transmission Date: 20120825
  Serious: No
  Sender: FDA-Public Use
  Company Number: US-PFIZER INC-2012084710

PATIENT
  Sex: Female
  Weight: 47.6 kg

DRUGS (4)
  1. MIRTAZAPINE [Concomitant]
     Dosage: 15 MG, UNK
  2. ROBAXIN [Concomitant]
     Dosage: 750 MG, UNK
  3. RELPAX [Suspect]
     Indication: MIGRAINE
     Dosage: 40 MG, AS NEEDED
     Route: 048
     Dates: start: 20120323
  4. TRAMADOL [Concomitant]
     Indication: BACK DISORDER
     Dosage: UNK, 2X/DAY

REACTIONS (1)
  - MIGRAINE [None]
